FAERS Safety Report 10168809 (Version 1)
Quarter: 2014Q2

REPORT INFORMATION
  Report Type: Spontaneous
  Country: IN (occurrence: None)
  Receive Date: 20140509
  Receipt Date: 20140509
  Transmission Date: 20141212
  Serious: Yes (Other)
  Sender: FDA-Public Use
  Company Number: 2014P1003864

PATIENT
  Age: 36 Year
  Sex: Male

DRUGS (2)
  1. CIPROFLOXACIN [Suspect]
  2. OFLOXACIN [Suspect]
     Indication: PYREXIA

REACTIONS (3)
  - Pigmentation disorder [None]
  - Dermatitis bullous [None]
  - Drug eruption [None]
